FAERS Safety Report 5712999-1 (Version None)
Quarter: 2008Q2

REPORT INFORMATION
  Report Type: 
  Country: None (occurrence: None)
  Receive Date: 20080422
  Receipt Date: 20080416
  Transmission Date: 20081010
  Serious: Yes (Hospitalization)
  Sender: FDA-Public Use
  Company Number: FR-BRISTOL-MYERS SQUIBB COMPANY-14156160

PATIENT
  Age: 95 Year
  Sex: Female

DRUGS (11)
  1. IRBESARTAN [Suspect]
     Indication: HYPERTENSION
     Route: 048
  2. RISPERDAL [Suspect]
     Indication: CONFUSIONAL STATE
     Route: 048
     Dates: start: 20070323, end: 20070328
  3. SERESTA [Suspect]
     Indication: SLEEP DISORDER
     Route: 048
     Dates: start: 20070323, end: 20070329
  4. CARDENSIEL [Suspect]
     Indication: HYPERTENSION
     Route: 048
     Dates: end: 20070328
  5. NITRODERM [Suspect]
     Dosage: 20 MG DAILY FROM 23-MAR-2007 TO 29-MAR-2007.
     Route: 062
     Dates: end: 20070322
  6. ESIDRIX [Suspect]
     Indication: HYPERTENSION
     Route: 048
     Dates: start: 20070324
  7. ADANCOR [Suspect]
     Indication: MYOCARDIAL ISCHAEMIA
     Route: 048
  8. ACTISKENAN [Concomitant]
     Route: 048
     Dates: start: 20070324, end: 20070325
  9. SKENAN [Concomitant]
     Dosage: 1 DOSAGE FORM = 10 OR 20 MG. DOSAGE INCREASED TO 2 TABS OF 10MG
     Route: 048
     Dates: start: 20070326, end: 20070328
  10. PERSANTINE [Concomitant]
     Route: 048
  11. DAFALGAN [Concomitant]

REACTIONS (8)
  - BRADYCARDIA [None]
  - BRONCHIAL OBSTRUCTION [None]
  - DEPRESSED LEVEL OF CONSCIOUSNESS [None]
  - ERYSIPELAS [None]
  - HYPOTHERMIA [None]
  - INTESTINAL OBSTRUCTION [None]
  - SINUS BRADYCARDIA [None]
  - SOMNOLENCE [None]
